FAERS Safety Report 11339745 (Version 1)
Quarter: 2015Q3

REPORT INFORMATION
  Report Type: Spontaneous
  Country: FR (occurrence: None)
  Receive Date: 20150803
  Receipt Date: 20150803
  Transmission Date: 20151125
  Serious: Yes (Hospitalization)
  Sender: FDA-Public Use
  Company Number: 2015-001545

PATIENT
  Age: 86 Year
  Sex: Female

DRUGS (13)
  1. PAROXOTINE (PAROXETINE) [Concomitant]
  2. ALPRAZOLAM (ALPRAZOLAM) [Concomitant]
     Active Substance: ALPRAZOLAM
  3. CORTANCYL (PREDNISONE) [Concomitant]
     Active Substance: PREDNISONE
  4. ATORVASTATIN (ATROVASTATIN) [Concomitant]
     Active Substance: ATORVASTATIN
     Route: 048
     Dates: end: 20150612
  5. INEXIUM (ESOMEPRAZOLE MAGNESIUM) [Concomitant]
     Active Substance: ESOMEPRAZOLE MAGNESIUM
  6. CALCIUM CARBONATE (CALCIUM CARBONATE) [Concomitant]
  7. KARDEFIC (ACETYLSALICYLATE LYSINE) [Concomitant]
  8. CELLUVISC (CARMELLOSE SODIUM) [Concomitant]
  9. ACTONEL [Suspect]
     Active Substance: RISEDRONATE SODIUM
     Route: 048
     Dates: end: 20150612
  10. COAPROVEL (HYDROCHLOROTHIAZIDE, IRESARTAN) [Concomitant]
  11. LUMIGAN (BIMATOPROS) [Concomitant]
  12. CHOLECALCIFEROL (COLECALIFEROL) [Concomitant]
  13. MARCOGOL 3350 (MARCOGOL 3350) [Concomitant]

REACTIONS (6)
  - Interstitial lung disease [None]
  - Glycosylated haemoglobin increased [None]
  - Candida test positive [None]
  - Cardiomegaly [None]
  - Mitral valve incompetence [None]
  - Aortic valve incompetence [None]

NARRATIVE: CASE EVENT DATE: 201502
